FAERS Safety Report 9712875 (Version 3)
Quarter: 2014Q2

REPORT INFORMATION
  Report Type: Spontaneous
  Country: US (occurrence: US)
  Receive Date: 20131126
  Receipt Date: 20140510
  Transmission Date: 20141212
  Serious: No
  Sender: FDA-Public Use
  Company Number: US-BRISTOL-MYERS SQUIBB COMPANY-19312685

PATIENT
  Age: 62 Year
  Sex: Female
  Weight: 63.49 kg

DRUGS (2)
  1. BYDUREON [Suspect]
     Indication: INSULIN RESISTANCE
     Dosage: 2ND DOSE ON 2SEP13
     Route: 058
     Dates: start: 20130826
  2. METFORMIN [Concomitant]

REACTIONS (2)
  - Vision blurred [Recovering/Resolving]
  - Constipation [Unknown]
